FAERS Safety Report 5591373-5 (Version None)
Quarter: 2008Q1

REPORT INFORMATION
  Report Type: 
  Country: None (occurrence: None)
  Receive Date: 20080111
  Receipt Date: 20080111
  Transmission Date: 20080703
  Serious: Yes (Life-Threatening, Hospitalization)
  Sender: FDA-Public Use
  Company Number: None

PATIENT
  Age: 37 Year
  Sex: Female
  Weight: 73 kg

DRUGS (1)
  1. ENOXAPARIN SODIUM [Suspect]
     Indication: THROMBOSIS PROPHYLAXIS
     Dosage: 30MG  DAILY  SQ
     Route: 058

REACTIONS (4)
  - ANTIBODY TEST POSITIVE [None]
  - HEPARIN-INDUCED THROMBOCYTOPENIA TEST [None]
  - PULMONARY EMBOLISM [None]
  - THROMBOCYTOPENIA [None]
